FAERS Safety Report 12913352 (Version 33)
Quarter: 2024Q2

REPORT INFORMATION
  Report Type: Spontaneous
  Country: CA (occurrence: CA)
  Receive Date: 20161104
  Receipt Date: 20240410
  Transmission Date: 20240716
  Serious: Yes (Hospitalization, Disabling, Congenital Anomaly, Other)
  Sender: FDA-Public Use
  Company Number: CA-BRISTOL-MYERS SQUIBB COMPANY-BMS-2016-037942

PATIENT
  Age: 63 Year
  Sex: Female
  Weight: 95 kg

DRUGS (157)
  1. ORENCIA [Suspect]
     Active Substance: ABATACEPT
     Indication: Rheumatoid arthritis
     Dosage: 1000 MILLIGRAM, Q4WK
     Route: 042
  2. ORENCIA [Suspect]
     Active Substance: ABATACEPT
     Dosage: 125 MILLIGRAM, QWK
     Route: 042
  3. ORENCIA [Suspect]
     Active Substance: ABATACEPT
     Dosage: 0.75 MILLIGRAM, QMO
     Route: 042
  4. ORENCIA [Suspect]
     Active Substance: ABATACEPT
     Dosage: UNK
  5. ORENCIA [Suspect]
     Active Substance: ABATACEPT
     Dosage: 25 MILLIGRAM, QWK
     Route: 042
  6. ORENCIA [Suspect]
     Active Substance: ABATACEPT
  7. ORENCIA [Suspect]
     Active Substance: ABATACEPT
     Route: 058
  8. XELJANZ [Concomitant]
     Active Substance: TOFACITINIB CITRATE
     Indication: Rheumatoid arthritis
     Dosage: 5 MILLIGRAM, BID
     Route: 048
  9. XELJANZ [Concomitant]
     Active Substance: TOFACITINIB CITRATE
     Dosage: UNK
  10. XELJANZ [Concomitant]
     Active Substance: TOFACITINIB CITRATE
     Dosage: UNK
     Route: 048
  11. XELJANZ [Concomitant]
     Active Substance: TOFACITINIB CITRATE
  12. RITUXAN [Concomitant]
     Active Substance: RITUXIMAB
     Indication: Rheumatoid arthritis
     Dosage: UNK
     Route: 042
     Dates: start: 2015, end: 2016
  13. ACTEMRA [Concomitant]
     Active Substance: TOCILIZUMAB
     Indication: Rheumatoid arthritis
     Dosage: 162 MILLIGRAM
     Route: 058
  14. ACTEMRA [Concomitant]
     Active Substance: TOCILIZUMAB
     Dosage: 8 MILLIGRAM/KILOGRAM
     Route: 042
  15. ACTEMRA [Concomitant]
     Active Substance: TOCILIZUMAB
     Dosage: UNK
     Route: 058
  16. ACTEMRA [Concomitant]
     Active Substance: TOCILIZUMAB
     Dosage: 360 MILLIGRAM, QMO
  17. ACTEMRA [Concomitant]
     Active Substance: TOCILIZUMAB
     Dosage: 380 MILLIGRAM
  18. ACTEMRA [Concomitant]
     Active Substance: TOCILIZUMAB
     Dosage: 680 MILLIGRAM, QMO
  19. ACTEMRA [Concomitant]
     Active Substance: TOCILIZUMAB
     Dosage: 360 MILLIGRAM, QMO
  20. ACTEMRA [Concomitant]
     Active Substance: TOCILIZUMAB
     Dosage: 8.0 UG/KG
     Route: 040
  21. ENBREL [Concomitant]
     Active Substance: ETANERCEPT
     Indication: Rheumatoid arthritis
     Dosage: 50 MILLIGRAM, QWK
     Route: 058
     Dates: start: 2013, end: 2013
  22. ENBREL [Concomitant]
     Active Substance: ETANERCEPT
     Dosage: 40 MILLIGRAM, QWK
     Route: 058
  23. ENBREL [Concomitant]
     Active Substance: ETANERCEPT
     Route: 058
  24. ENBREL [Concomitant]
     Active Substance: ETANERCEPT
     Route: 058
  25. ENBREL [Concomitant]
     Active Substance: ETANERCEPT
  26. HUMIRA [Concomitant]
     Active Substance: ADALIMUMAB
     Indication: Rheumatoid arthritis
     Dosage: 40 MILLIGRAM, QWK
     Route: 058
  27. HUMIRA [Concomitant]
     Active Substance: ADALIMUMAB
     Dosage: UNK
  28. HUMIRA [Concomitant]
     Active Substance: ADALIMUMAB
     Dosage: 40 MILLIGRAM
     Route: 058
  29. HUMIRA [Concomitant]
     Active Substance: ADALIMUMAB
     Dosage: UNK
     Route: 058
  30. HUMIRA [Concomitant]
     Active Substance: ADALIMUMAB
     Route: 058
  31. METHOTREXATE SODIUM [Concomitant]
     Active Substance: METHOTREXATE SODIUM
     Indication: Rheumatoid arthritis
     Route: 058
  32. METHOTREXATE SODIUM [Concomitant]
     Active Substance: METHOTREXATE SODIUM
     Route: 058
  33. HYDROXYCHLOROQUINE DIPHOSPHATE [Concomitant]
     Active Substance: HYDROXYCHLOROQUINE DIPHOSPHATE
     Indication: Rheumatoid arthritis
     Dosage: UNK
     Route: 048
  34. HYDROXYCHLOROQUINE DIPHOSPHATE [Concomitant]
     Active Substance: HYDROXYCHLOROQUINE DIPHOSPHATE
     Dosage: UNK
  35. REMICADE [Concomitant]
     Active Substance: INFLIXIMAB
     Indication: Rheumatoid arthritis
     Dosage: 5 MILLIGRAM/KILOGRAM
     Route: 042
  36. REMICADE [Concomitant]
     Active Substance: INFLIXIMAB
     Indication: Crohn^s disease
  37. REMICADE [Concomitant]
     Active Substance: INFLIXIMAB
     Indication: Psoriasis
     Dosage: 5 MILLIGRAM/KILOGRAM
     Route: 042
  38. REMICADE [Concomitant]
     Active Substance: INFLIXIMAB
     Indication: Ankylosing spondylitis
     Dosage: 5 MILLIGRAM/KILOGRAM
     Route: 040
  39. REMICADE [Concomitant]
     Active Substance: INFLIXIMAB
     Dosage: 5 MILLIGRAM/KILOGRAM
     Route: 042
  40. HYDROXYCHLOROQUINE SULFATE [Concomitant]
     Active Substance: HYDROXYCHLOROQUINE SULFATE
     Indication: Rheumatoid arthritis
     Dosage: 200 MILLIGRAM
     Route: 048
  41. HYDROXYCHLOROQUINE SULFATE [Concomitant]
     Active Substance: HYDROXYCHLOROQUINE SULFATE
     Dosage: 400 MILLIGRAM, QD
  42. HYDROXYCHLOROQUINE SULFATE [Concomitant]
     Active Substance: HYDROXYCHLOROQUINE SULFATE
     Route: 048
  43. HYDROXYCHLOROQUINE SULFATE [Concomitant]
     Active Substance: HYDROXYCHLOROQUINE SULFATE
  44. HYDROXYCHLOROQUINE SULFATE [Concomitant]
     Active Substance: HYDROXYCHLOROQUINE SULFATE
  45. HYDROXYCHLOROQUINE SULFATE [Concomitant]
     Active Substance: HYDROXYCHLOROQUINE SULFATE
  46. HYDROXYCHLOROQUINE [Concomitant]
     Active Substance: HYDROXYCHLOROQUINE
     Indication: Rheumatoid arthritis
  47. HYDROXYCHLOROQUINE [Concomitant]
     Active Substance: HYDROXYCHLOROQUINE
     Route: 048
  48. HYDROXYCHLOROQUINE [Concomitant]
     Active Substance: HYDROXYCHLOROQUINE
     Route: 058
  49. HYDROXYCHLOROQUINE [Concomitant]
     Active Substance: HYDROXYCHLOROQUINE
     Route: 048
  50. HYDROXYCHLOROQUINE [Concomitant]
     Active Substance: HYDROXYCHLOROQUINE
     Route: 048
  51. HYDROXYCHLOROQUINE [Concomitant]
     Active Substance: HYDROXYCHLOROQUINE
     Route: 048
  52. LEFLUNOMIDE [Concomitant]
     Active Substance: LEFLUNOMIDE
     Indication: Rheumatoid arthritis
     Dosage: 10 MILLIGRAM, QD
  53. LEFLUNOMIDE [Concomitant]
     Active Substance: LEFLUNOMIDE
     Route: 048
  54. LEFLUNOMIDE [Concomitant]
     Active Substance: LEFLUNOMIDE
     Dosage: UNK
     Route: 042
  55. LEFLUNOMIDE [Concomitant]
     Active Substance: LEFLUNOMIDE
     Route: 048
  56. LEFLUNOMIDE [Concomitant]
     Active Substance: LEFLUNOMIDE
     Indication: Rheumatoid arthritis
     Dosage: 10 MILLIGRAM, QD
     Route: 048
  57. LEFLUNOMIDE [Concomitant]
     Active Substance: LEFLUNOMIDE
     Dosage: 10 MILLIGRAM, QD
  58. LEFLUNOMIDE [Concomitant]
     Active Substance: LEFLUNOMIDE
     Dosage: UNK
  59. LEFLUNOMIDE [Concomitant]
     Active Substance: LEFLUNOMIDE
     Route: 058
  60. LEFLUNOMIDE [Concomitant]
     Active Substance: LEFLUNOMIDE
  61. LEFLUNOMIDE [Concomitant]
     Active Substance: LEFLUNOMIDE
     Route: 048
  62. LEFLUNOMIDE [Concomitant]
     Active Substance: LEFLUNOMIDE
  63. RITUXIMAB [Concomitant]
     Active Substance: RITUXIMAB
     Indication: Rheumatoid arthritis
     Dosage: 1000 MILLIGRAM
     Route: 042
  64. RITUXIMAB [Concomitant]
     Active Substance: RITUXIMAB
     Route: 041
  65. RITUXIMAB [Concomitant]
     Active Substance: RITUXIMAB
  66. RITUXIMAB [Concomitant]
     Active Substance: RITUXIMAB
     Dosage: UNK MILLIGRAM
     Route: 042
  67. RITUXIMAB [Concomitant]
     Active Substance: RITUXIMAB
     Dosage: 1000 MILLIGRAM
     Route: 040
  68. AZATHIOPRINE [Concomitant]
     Active Substance: AZATHIOPRINE
     Indication: Rheumatoid arthritis
  69. METHOTREXATE [Concomitant]
     Active Substance: METHOTREXATE
     Indication: Rheumatoid arthritis
     Route: 058
  70. METHOTREXATE [Concomitant]
     Active Substance: METHOTREXATE
  71. METHOTREXATE [Concomitant]
     Active Substance: METHOTREXATE
     Route: 048
  72. METHOTREXATE [Concomitant]
     Active Substance: METHOTREXATE
     Route: 048
  73. METHOTREXATE [Concomitant]
     Active Substance: METHOTREXATE
  74. METHOTREXATE [Concomitant]
     Active Substance: METHOTREXATE
     Route: 048
  75. AZATHIOPRINE [Concomitant]
     Active Substance: AZATHIOPRINE
     Indication: Rheumatoid arthritis
     Dosage: UNK
  76. BUDESONIDE [Concomitant]
     Active Substance: BUDESONIDE
     Indication: Product used for unknown indication
  77. MAGNESIUM OXIDE [Concomitant]
     Active Substance: MAGNESIUM OXIDE
     Indication: Product used for unknown indication
  78. FOSAMAX [Concomitant]
     Active Substance: ALENDRONATE SODIUM
     Indication: Rheumatoid arthritis
  79. ARAVA [Concomitant]
     Active Substance: LEFLUNOMIDE
     Indication: Product used for unknown indication
     Route: 048
  80. ARAVA [Concomitant]
     Active Substance: LEFLUNOMIDE
     Route: 048
  81. ARAVA [Concomitant]
     Active Substance: LEFLUNOMIDE
  82. SULFASALAZINE [Concomitant]
     Active Substance: SULFASALAZINE
     Indication: Rheumatoid arthritis
     Route: 048
  83. SULFASALAZINE [Concomitant]
     Active Substance: SULFASALAZINE
  84. SULFASALAZINE [Concomitant]
     Active Substance: SULFASALAZINE
  85. SULFASALAZINE [Concomitant]
     Active Substance: SULFASALAZINE
  86. TOCILIZUMAB [Concomitant]
     Active Substance: TOCILIZUMAB
     Indication: Rheumatoid arthritis
     Dosage: 680 MILLIGRAM, QMO
  87. TOCILIZUMAB [Concomitant]
     Active Substance: TOCILIZUMAB
     Dosage: UNK
  88. CODEINE [Concomitant]
     Active Substance: CODEINE
     Indication: Rheumatoid arthritis
  89. MYOCHRYSINE [Concomitant]
     Active Substance: GOLD SODIUM THIOMALATE
     Indication: Rheumatoid arthritis
     Dosage: SOLUTION
     Route: 030
  90. PREDNISONE [Concomitant]
     Active Substance: PREDNISONE
     Indication: Rheumatoid arthritis
     Dosage: 5 MILLIGRAM, QD
     Route: 016
     Dates: start: 20161105
  91. PREDNISONE [Concomitant]
     Active Substance: PREDNISONE
     Indication: Condition aggravated
     Dosage: 10 MILLIGRAM, BID
  92. PREDNISONE [Concomitant]
     Active Substance: PREDNISONE
     Dosage: 8.5 UNK
  93. PREDNISONE [Concomitant]
     Active Substance: PREDNISONE
     Dosage: 10 MILLIGRAM, BID
     Route: 048
  94. PREDNISONE [Concomitant]
     Active Substance: PREDNISONE
  95. PREDNISONE [Concomitant]
     Active Substance: PREDNISONE
     Route: 048
  96. PREDNISONE [Concomitant]
     Active Substance: PREDNISONE
  97. SIMPONI [Concomitant]
     Active Substance: GOLIMUMAB
     Indication: Rheumatoid arthritis
     Dosage: 3.0 UG/KG
     Route: 058
  98. ASPIRIN [Concomitant]
     Active Substance: ASPIRIN
     Indication: Product used for unknown indication
     Dosage: UNK
  99. ACTONEL [Concomitant]
     Active Substance: RISEDRONATE SODIUM
     Indication: Product used for unknown indication
     Dosage: UNK
  100. ALPRAZOLAM [Concomitant]
     Active Substance: ALPRAZOLAM
     Indication: Product used for unknown indication
     Dosage: UNK
  101. AMLODIPINE BESYLATE [Concomitant]
     Active Substance: AMLODIPINE BESYLATE
     Indication: Product used for unknown indication
  102. BISOPROLOL FUMARATE [Concomitant]
     Active Substance: BISOPROLOL FUMARATE
     Indication: Product used for unknown indication
     Dosage: UNK
  103. CELEBREX [Concomitant]
     Active Substance: CELECOXIB
     Indication: Product used for unknown indication
     Dosage: UNK
  104. ERGOCALCIFEROL [Concomitant]
     Active Substance: ERGOCALCIFEROL
     Indication: Product used for unknown indication
  105. FOLIC ACID [Concomitant]
     Active Substance: FOLIC ACID
     Indication: Product used for unknown indication
     Dosage: UNK
     Route: 048
  106. METFORMIN [Concomitant]
     Active Substance: METFORMIN HYDROCHLORIDE
     Indication: Product used for unknown indication
     Dosage: UNK
  107. MORPHINE SULFATE [Concomitant]
     Active Substance: MORPHINE SULFATE
     Indication: Product used for unknown indication
     Dosage: UNK
  108. PANTOPRAZOLE [Concomitant]
     Active Substance: PANTOPRAZOLE
     Indication: Product used for unknown indication
     Dosage: UNK
  109. PAROXETINE [Concomitant]
     Active Substance: PAROXETINE
     Indication: Product used for unknown indication
     Dosage: UNK
  110. RISEDRONATE SODIUM [Concomitant]
     Active Substance: RISEDRONATE SODIUM
     Indication: Product used for unknown indication
     Dosage: UNK
     Route: 048
  111. RISEDRONATE SODIUM [Concomitant]
     Active Substance: RISEDRONATE SODIUM
     Dosage: UNK
  112. SIMVASTATIN [Concomitant]
     Active Substance: SIMVASTATIN
     Indication: Product used for unknown indication
     Dosage: UNK
  113. TELMISARTAN [Concomitant]
     Active Substance: TELMISARTAN
     Indication: Product used for unknown indication
     Dosage: UNK
  114. TELMISARTAN [Concomitant]
     Active Substance: TELMISARTAN
     Dosage: UNK
  115. ESOMEPRAZOLE [Concomitant]
     Active Substance: ESOMEPRAZOLE
     Indication: Gastrointestinal disorder
  116. IRON SUCROSE [Concomitant]
     Active Substance: IRON SUCROSE
     Indication: Product used for unknown indication
  117. ALENDRONATE SODIUM [Concomitant]
     Active Substance: ALENDRONATE SODIUM
     Indication: Product used for unknown indication
     Dosage: UNK
  118. ATENOLOL [Concomitant]
     Active Substance: ATENOLOL
     Indication: Product used for unknown indication
  119. ATENOLOL [Concomitant]
     Active Substance: ATENOLOL
     Route: 048
  120. CYANOCOBALAMIN [Concomitant]
     Active Substance: CYANOCOBALAMIN
     Indication: Product used for unknown indication
  121. GOLD [Concomitant]
     Active Substance: GOLD
     Indication: Product used for unknown indication
  122. HYDROCHLOROTHIAZIDE [Concomitant]
     Active Substance: HYDROCHLOROTHIAZIDE
     Indication: Product used for unknown indication
  123. IRON [Concomitant]
     Active Substance: IRON
     Indication: Product used for unknown indication
  124. LYRICA [Concomitant]
     Active Substance: PREGABALIN
     Indication: Product used for unknown indication
  125. PRAMIPEXOLE [Concomitant]
     Active Substance: PRAMIPEXOLE\PRAMIPEXOLE DIHYDROCHLORIDE
     Indication: Product used for unknown indication
     Dosage: UNK
  126. PROPRANOLOL [Concomitant]
     Active Substance: PROPRANOLOL HYDROCHLORIDE
     Indication: Product used for unknown indication
     Dosage: UNK
  127. RAMIPRIL [Concomitant]
     Active Substance: RAMIPRIL
     Indication: Product used for unknown indication
  128. SERTRALINE [Concomitant]
     Active Substance: SERTRALINE HYDROCHLORIDE
     Indication: Product used for unknown indication
     Dosage: UNK
  129. TRAZODONE [Concomitant]
     Active Substance: TRAZODONE HYDROCHLORIDE
     Indication: Rheumatoid arthritis
     Dosage: UNK
  130. TRAZODONE [Concomitant]
     Active Substance: TRAZODONE HYDROCHLORIDE
  131. BENDAMUSTINE;BORTEZOMIB;DEXAMETHASONE;RITUXIMAB [Concomitant]
     Indication: Rheumatoid arthritis
     Route: 041
  132. BENDAMUSTINE;BORTEZOMIB;DEXAMETHASONE;RITUXIMAB [Concomitant]
     Route: 042
  133. SERTRALINE HYDROCHLORIDE [Concomitant]
     Active Substance: SERTRALINE HYDROCHLORIDE
     Indication: Product used for unknown indication
  134. PRAMIPEXOLE DIHYDROCHLORIDE [Concomitant]
     Active Substance: PRAMIPEXOLE DIHYDROCHLORIDE
     Indication: Product used for unknown indication
  135. PRAMIPEXOLE DIHYDROCHLORIDE [Concomitant]
     Active Substance: PRAMIPEXOLE DIHYDROCHLORIDE
  136. SACCHARATED IRON OXIDE [Concomitant]
     Active Substance: IRON SUCROSE
     Indication: Product used for unknown indication
  137. WELLBUTRIN [Concomitant]
     Active Substance: BUPROPION HYDROCHLORIDE
     Indication: Product used for unknown indication
     Dosage: ER
  138. TOFACITINIB CITRATE [Concomitant]
     Active Substance: TOFACITINIB CITRATE
     Indication: Product used for unknown indication
     Dosage: ER
  139. BUPROPION [Concomitant]
     Active Substance: BUPROPION
     Indication: Product used for unknown indication
  140. CHLOROQUINE DIPHOSPHATE [Concomitant]
     Active Substance: CHLOROQUINE PHOSPHATE
     Indication: Rheumatoid arthritis
  141. CYCLOSPORINE [Concomitant]
     Active Substance: CYCLOSPORINE
     Indication: Rheumatoid arthritis
     Route: 058
  142. CIMZIA [Concomitant]
     Active Substance: CERTOLIZUMAB PEGOL
     Indication: Product used for unknown indication
     Route: 058
  143. CIMZIA [Concomitant]
     Active Substance: CERTOLIZUMAB PEGOL
  144. DOXYCYCLINE HYCLATE [Concomitant]
     Active Substance: DOXYCYCLINE HYCLATE
     Indication: Product used for unknown indication
  145. NEORAL [Concomitant]
     Active Substance: CYCLOSPORINE
     Indication: Rheumatoid arthritis
  146. ACETAMINOPHEN [Concomitant]
     Active Substance: ACETAMINOPHEN
     Indication: Product used for unknown indication
  147. AMLODIPINE BESYLATE [Concomitant]
     Active Substance: AMLODIPINE BESYLATE
     Indication: Product used for unknown indication
  148. PANTOPRAZOLE SODIUM [Concomitant]
     Active Substance: PANTOPRAZOLE SODIUM
     Indication: Product used for unknown indication
  149. PAROXETINE HYDROCHLORIDE [Concomitant]
     Active Substance: PAROXETINE HYDROCHLORIDE\PAROXETINE HYDROCHLORIDE ANHYDROUS
     Indication: Product used for unknown indication
  150. BISOPROLOL FUMARATE AND HYDROCHLOROTHIAZIDE [Concomitant]
     Active Substance: BISOPROLOL FUMARATE\HYDROCHLOROTHIAZIDE
     Indication: Product used for unknown indication
  151. ESOMEPRAZOLE MAGNESIUM [Concomitant]
     Active Substance: ESOMEPRAZOLE MAGNESIUM
     Indication: Product used for unknown indication
  152. RISEDRONATE SODIUM [Concomitant]
     Active Substance: RISEDRONATE SODIUM
     Indication: Product used for unknown indication
  153. COSENTYX [Concomitant]
     Active Substance: SECUKINUMAB
     Indication: Product used for unknown indication
  154. ERELZI [Concomitant]
     Active Substance: ETANERCEPT-SZZS
     Indication: Product used for unknown indication
     Dosage: 330.0 DAYS
  155. INFLIXIMAB [Concomitant]
     Active Substance: INFLIXIMAB
     Indication: Psoriasis
  156. INFLIXIMAB [Concomitant]
     Active Substance: INFLIXIMAB
     Indication: Ankylosing spondylitis
  157. TALTZ [Concomitant]
     Active Substance: IXEKIZUMAB
     Indication: Product used for unknown indication

REACTIONS (58)
  - Arthritis [Not Recovered/Not Resolved]
  - Arthropathy [Not Recovered/Not Resolved]
  - Arthralgia [Not Recovered/Not Resolved]
  - Condition aggravated [Not Recovered/Not Resolved]
  - Pneumonia [Not Recovered/Not Resolved]
  - Drug ineffective [Not Recovered/Not Resolved]
  - Hepatic enzyme increased [Not Recovered/Not Resolved]
  - Joint swelling [Not Recovered/Not Resolved]
  - Inflammation [Not Recovered/Not Resolved]
  - Loss of personal independence in daily activities [Not Recovered/Not Resolved]
  - Pulmonary fibrosis [Not Recovered/Not Resolved]
  - Treatment failure [Not Recovered/Not Resolved]
  - Rheumatoid arthritis [Not Recovered/Not Resolved]
  - Abdominal pain [Not Recovered/Not Resolved]
  - Headache [Not Recovered/Not Resolved]
  - C-reactive protein increased [Not Recovered/Not Resolved]
  - Infusion related reaction [Not Recovered/Not Resolved]
  - Red blood cell sedimentation rate increased [Not Recovered/Not Resolved]
  - Rheumatoid factor positive [Not Recovered/Not Resolved]
  - Synovitis [Not Recovered/Not Resolved]
  - Drug hypersensitivity [Not Recovered/Not Resolved]
  - Hypertension [Not Recovered/Not Resolved]
  - Insomnia [Not Recovered/Not Resolved]
  - Off label use [Unknown]
  - Breath sounds abnormal [Not Recovered/Not Resolved]
  - Alanine aminotransferase increased [Not Recovered/Not Resolved]
  - Aspartate aminotransferase increased [Not Recovered/Not Resolved]
  - Basal cell carcinoma [Not Recovered/Not Resolved]
  - Blood parathyroid hormone decreased [Not Recovered/Not Resolved]
  - Drug eruption [Not Recovered/Not Resolved]
  - Drug intolerance [Not Recovered/Not Resolved]
  - Drug tolerance decreased [Not Recovered/Not Resolved]
  - Erythema [Not Recovered/Not Resolved]
  - Granuloma skin [Not Recovered/Not Resolved]
  - Hypercalcaemia [Not Recovered/Not Resolved]
  - Hypersensitivity [Not Recovered/Not Resolved]
  - Musculoskeletal stiffness [Not Recovered/Not Resolved]
  - Pain [Not Recovered/Not Resolved]
  - Panniculitis [Not Recovered/Not Resolved]
  - Peripheral swelling [Not Recovered/Not Resolved]
  - Pruritus [Not Recovered/Not Resolved]
  - Rash [Not Recovered/Not Resolved]
  - Rash pruritic [Not Recovered/Not Resolved]
  - Rheumatoid nodule [Not Recovered/Not Resolved]
  - Skin necrosis [Not Recovered/Not Resolved]
  - Skin ulcer [Not Recovered/Not Resolved]
  - Therapeutic product effect decreased [Not Recovered/Not Resolved]
  - Therapeutic response decreased [Not Recovered/Not Resolved]
  - Ulcer [Not Recovered/Not Resolved]
  - Fatigue [Not Recovered/Not Resolved]
  - Hepatitis [Not Recovered/Not Resolved]
  - Nausea [Not Recovered/Not Resolved]
  - Vomiting [Not Recovered/Not Resolved]
  - Therapeutic product effect incomplete [Not Recovered/Not Resolved]
  - Deafness [Not Recovered/Not Resolved]
  - Adverse event [Not Recovered/Not Resolved]
  - Product use issue [Unknown]
  - Congenital anomaly [Not Recovered/Not Resolved]
